FAERS Safety Report 8494114-7 (Version None)
Quarter: 2012Q2

REPORT INFORMATION
  Report Type: 
  Country: None (occurrence: None)
  Receive Date: 20120628
  Receipt Date: 20120620
  Transmission Date: 20120825
  Serious: Yes (Hospitalization)
  Sender: FDA-Public Use
  Company Number: DSA_56442_2012

PATIENT
  Age: 89 Year
  Sex: Female

DRUGS (21)
  1. CARDIZEM LA [Suspect]
     Indication: PRODUCT USED FOR UNKNOWN INDICATION
     Dosage: DF, DF INTRAVENOUS DRIP
     Route: 041
     Dates: start: 20100618
  2. LISINOPRIL [Concomitant]
  3. STOOL SOFTENER [Concomitant]
  4. VITAMINS NOS [Concomitant]
  5. AMLODIPINE [Concomitant]
  6. PROTONIX [Concomitant]
  7. BIDIL [Concomitant]
  8. CLOBETASOL PROPIONATE [Concomitant]
  9. UBIQUINONE [Concomitant]
  10. FISH OIL [Concomitant]
  11. ASPIRIN [Concomitant]
  12. POTASSIUM CHLORIDE [Concomitant]
  13. ASCORBIC ACID [Concomitant]
  14. METHOTREXATE [Concomitant]
  15. PLAVIX [Concomitant]
  16. FUROSEMIDE [Concomitant]
  17. NITROSTAT [Concomitant]
  18. HUMIRA [Concomitant]
  19. FOLIC ACID [Concomitant]
  20. CARVEDILOL [Concomitant]
  21. ZOCOR [Concomitant]

REACTIONS (5)
  - RASH GENERALISED [None]
  - CHEST DISCOMFORT [None]
  - EXFOLIATIVE RASH [None]
  - BLOOD PRESSURE DECREASED [None]
  - DRUG HYPERSENSITIVITY [None]
